FAERS Safety Report 10475437 (Version 1)
Quarter: 2014Q3

REPORT INFORMATION
  Report Type: Spontaneous
  Country: US (occurrence: None)
  Receive Date: 20140924
  Receipt Date: 20140924
  Transmission Date: 20150326
  Serious: Yes (Hospitalization)
  Sender: FDA-Public Use
  Company Number: None

PATIENT
  Age: 50 Year
  Sex: Female
  Weight: 76.3 kg

DRUGS (6)
  1. MOTRIN IB [Suspect]
     Active Substance: IBUPROFEN
     Indication: CHEST DISCOMFORT
     Route: 048
  2. ASPIRIN. [Suspect]
     Active Substance: ASPIRIN
     Dosage: 2.5MG, MF, PO
     Route: 048
  3. METOPROLOL [Concomitant]
     Active Substance: METOPROLOL
  4. COUMADIN [Suspect]
     Active Substance: WARFARIN SODIUM
     Indication: THROMBOSIS PROPHYLAXIS
     Dosage: 5MG, SSTWTH, PO
     Route: 048
  5. NTG [Concomitant]
     Active Substance: NITROGLYCERIN
  6. ACCUPRIL [Concomitant]
     Active Substance: QUINAPRIL HYDROCHLORIDE

REACTIONS (6)
  - Inflammatory bowel disease [None]
  - Crohn^s disease [None]
  - Coagulopathy [None]
  - Anaemia [None]
  - Treatment noncompliance [None]
  - Gastric ulcer [None]

NARRATIVE: CASE EVENT DATE: 20140204
